FAERS Safety Report 8023726-X (Version None)
Quarter: 2012Q1

REPORT INFORMATION
  Report Type: 
  Country: None (occurrence: None)
  Receive Date: 20120103
  Receipt Date: 20120103
  Transmission Date: 20120608
  Serious: Yes (Hospitalization)
  Sender: FDA-Public Use
  Company Number: None

PATIENT
  Age: 76 Year
  Sex: Male
  Weight: 64.5 kg

DRUGS (1)
  1. CETUXIMAB [Suspect]
     Indication: NEOPLASM MALIGNANT
     Dosage: 450 MG QWEEK IV
     Route: 042
     Dates: start: 20111017, end: 20111205

REACTIONS (13)
  - DEHYDRATION [None]
  - NAUSEA [None]
  - DIARRHOEA [None]
  - HAEMATEMESIS [None]
  - WEIGHT DECREASED [None]
  - VOMITING [None]
  - ABDOMINAL DISCOMFORT [None]
  - STOMATITIS [None]
  - MELAENA [None]
  - CHILLS [None]
  - MALAISE [None]
  - DIZZINESS [None]
  - SYNCOPE [None]
